FAERS Safety Report 9700150 (Version 1)
Quarter: 2013Q4

REPORT INFORMATION
  Report Type: Spontaneous
  Country: US (occurrence: None)
  Receive Date: 20131107
  Receipt Date: 20131107
  Transmission Date: 20140711
  Serious: Yes (Other)
  Sender: FDA-Public Use
  Company Number: 2250051-2013-00388

PATIENT
  Sex: Male

DRUGS (1)
  1. RHOGAM [Suspect]
     Indication: AMNIOCENTESIS
     Dates: start: 19980322, end: 19980322

REACTIONS (2)
  - Autism [None]
  - Maternal drugs affecting foetus [None]
